FAERS Safety Report 8736425 (Version 3)
Quarter: 2013Q2

REPORT INFORMATION
  Report Type: Spontaneous
  Country: NZ (occurrence: NZ)
  Receive Date: 20120822
  Receipt Date: 20130429
  Transmission Date: 20140414
  Serious: Yes (Other)
  Sender: FDA-Public Use
  Company Number: NZ-ROCHE-1098635

PATIENT
  Sex: Male
  Weight: 60 kg

DRUGS (8)
  1. CELLCEPT [Suspect]
     Indication: PROPHYLAXIS AGAINST TRANSPLANT REJECTION
     Route: 048
     Dates: start: 200311
  2. CELLCEPT [Suspect]
     Route: 048
  3. TACROLIMUS [Suspect]
     Indication: PROPHYLAXIS AGAINST TRANSPLANT REJECTION
     Route: 048
     Dates: start: 201105
  4. TACROLIMUS [Suspect]
     Route: 048
  5. GLYCERYL TRINITRATE [Concomitant]
     Indication: ANGINA PECTORIS
     Route: 060
  6. B COMPLEX [Concomitant]
  7. L-PHENYLALANINE [Concomitant]
  8. FISH OIL [Concomitant]

REACTIONS (20)
  - Angina pectoris [Not Recovered/Not Resolved]
  - Andropause [Recovered/Resolved]
  - Suicidal ideation [Recovered/Resolved]
  - Decreased appetite [Not Recovered/Not Resolved]
  - Self injurious behaviour [Not Recovered/Not Resolved]
  - Transplant rejection [Recovered/Resolved]
  - Adrenal disorder [Not Recovered/Not Resolved]
  - Mania [Recovered/Resolved]
  - Libido increased [Recovered/Resolved]
  - Aggression [Not Recovered/Not Resolved]
  - Mood swings [Not Recovered/Not Resolved]
  - Partner stress [Unknown]
  - Hostility [Not Recovered/Not Resolved]
  - Anxiety [Not Recovered/Not Resolved]
  - Depression [Not Recovered/Not Resolved]
  - Nausea [Not Recovered/Not Resolved]
  - Gastric disorder [Not Recovered/Not Resolved]
  - Gender identity disorder [Not Recovered/Not Resolved]
  - Bone disorder [Not Recovered/Not Resolved]
  - Pain [Recovered/Resolved]
